FAERS Safety Report 4664576-1 (Version None)
Quarter: 2005Q2

REPORT INFORMATION
  Report Type: 
  Country: None (occurrence: None)
  Receive Date: 20050518
  Receipt Date: 20041203
  Transmission Date: 20051028
  Serious: Yes (Other)
  Sender: FDA-Public Use
  Company Number: GB-GLAXOSMITHKLINE-B0359567A

PATIENT
  Sex: Female

DRUGS (10)
  1. PAROXETINE HCL [Suspect]
     Route: 065
     Dates: start: 20010801
  2. ST JOHNS WORT [Concomitant]
     Route: 065
  3. SULPIRIDE [Concomitant]
     Route: 065
  4. VENLAFAXINE HCL [Concomitant]
     Route: 065
  5. CLONAZEPAM [Concomitant]
     Route: 065
  6. CLOMIPRAMINE HCL [Concomitant]
     Route: 065
  7. ZOPICLONE [Concomitant]
     Route: 065
  8. PROTHIADEN [Concomitant]
     Route: 065
  9. LORAZEPAM [Concomitant]
     Route: 065
  10. PROTHIADEN [Concomitant]
     Route: 065

REACTIONS (3)
  - SLEEP DISORDER [None]
  - SUICIDAL IDEATION [None]
  - TEARFULNESS [None]
